FAERS Safety Report 11999563 (Version 1)
Quarter: 2016Q1

REPORT INFORMATION
  Report Type: Report from Study
  Country: US (occurrence: US)
  Receive Date: 20160204
  Receipt Date: 20160204
  Transmission Date: 20160526
  Serious: Yes (Other)
  Sender: FDA-Public Use
  Company Number: US-AMGEN-USASL2016010937

PATIENT
  Age: 56 Year
  Sex: Female

DRUGS (5)
  1. IBUPROFEN. [Concomitant]
     Active Substance: IBUPROFEN
     Dosage: 800 MG, 2 TO 3 TIMES A DAY
     Dates: start: 2014
  2. NEURONTIN [Concomitant]
     Active Substance: GABAPENTIN
     Dosage: 100 MG, TID
  3. PERCOCET [Concomitant]
     Active Substance: ACETAMINOPHEN\OXYCODONE HYDROCHLORIDE
     Dosage: 5/325 1 TABLET, TID
  4. PROLIA [Suspect]
     Active Substance: DENOSUMAB
     Indication: OSTEOPOROSIS
     Dosage: UNK
     Route: 065
  5. VITAMIN B12 [Concomitant]
     Active Substance: CYANOCOBALAMIN
     Dosage: UNK

REACTIONS (5)
  - Dental cleaning [Unknown]
  - Endodontic procedure [Unknown]
  - Spinal operation [Unknown]
  - Loose tooth [Not Recovered/Not Resolved]
  - Bone loss [Not Recovered/Not Resolved]

NARRATIVE: CASE EVENT DATE: 2014
